FAERS Safety Report 23061855 (Version 1)
Quarter: 2023Q4

REPORT INFORMATION
  Report Type: Spontaneous
  Country: US (occurrence: US)
  Receive Date: 20231013
  Receipt Date: 20231013
  Transmission Date: 20240110
  Serious: No
  Sender: FDA-Public Use
  Company Number: US-AMGEN-USASP2023182321

PATIENT
  Age: 65 Year
  Sex: Female

DRUGS (3)
  1. REPATHA [Suspect]
     Active Substance: EVOLOCUMAB
     Indication: Blood cholesterol increased
     Dosage: 140 MILLIGRAM, Q2WK
     Route: 058
     Dates: start: 202307
  2. PRAVASTATIN [Concomitant]
     Active Substance: PRAVASTATIN
     Dosage: START DATE: A FEW YEARS AGO
  3. ZETIA [Concomitant]
     Active Substance: EZETIMIBE
     Dosage: A FEW YEARS AGO

REACTIONS (7)
  - Swelling of eyelid [Unknown]
  - Gingival erythema [Unknown]
  - Swelling face [Unknown]
  - Injection site erythema [Unknown]
  - Rash [Unknown]
  - Lip swelling [Unknown]
  - Injection site bruising [Unknown]

NARRATIVE: CASE EVENT DATE: 20230901
